FAERS Safety Report 9702525 (Version 3)
Quarter: 2013Q4

REPORT INFORMATION
  Report Type: Spontaneous
  Country: US (occurrence: US)
  Receive Date: 20131121
  Receipt Date: 20131202
  Transmission Date: 20140711
  Serious: No
  Sender: FDA-Public Use
  Company Number: US-GILEAD-2013-0087456

PATIENT
  Age: 72 Year
  Sex: Female

DRUGS (1)
  1. LETAIRIS [Suspect]
     Indication: PRODUCT USED FOR UNKNOWN INDICATION
     Dosage: 5 MG, QD
     Route: 048
     Dates: start: 20131023

REACTIONS (7)
  - Feeling abnormal [Unknown]
  - Fluid retention [Unknown]
  - Joint swelling [Unknown]
  - Fatigue [Unknown]
  - Nasal congestion [Unknown]
  - Oedema [Unknown]
  - Swelling [Unknown]
